FAERS Safety Report 20245826 (Version 1)
Quarter: 2021Q4

REPORT INFORMATION
  Report Type: Spontaneous
  Country: NL (occurrence: NL)
  Receive Date: 20211229
  Receipt Date: 20211229
  Transmission Date: 20220303
  Serious: Yes (Other)
  Sender: FDA-Public Use
  Company Number: None

PATIENT
  Age: 41 Year
  Sex: Female
  Weight: 85 kg

DRUGS (7)
  1. METHOTREXATE [Suspect]
     Active Substance: METHOTREXATE
     Indication: Psoriatic arthropathy
     Dosage: 1X PER WEEK 10 PIECES, STRENGTH: 2.5 MG
     Dates: start: 202009, end: 20211130
  2. PREDNISONE [Concomitant]
     Active Substance: PREDNISONE
     Dosage: STRENGTH: 5MG
  3. HUMIRA [Concomitant]
     Active Substance: ADALIMUMAB
     Dosage: STRENGTH: 100 MG/ML, DISPOSABLE SYRINGE 0.4 ML
  4. LEXAPRO [Concomitant]
     Active Substance: ESCITALOPRAM OXALATE
     Dosage: STRENGTH: 10 MG, TABLET
  5. ARCOXIA [Concomitant]
     Active Substance: ETORICOXIB
     Dosage: STRENGTH: 60 MG
  6. OMEPRAZOLE [Concomitant]
     Active Substance: OMEPRAZOLE
     Dosage: CAPSULE MSR, STRENGTH: 20MG
  7. ALPRAZOLAM [Concomitant]
     Active Substance: ALPRAZOLAM
     Dosage: TABLET MGA, STRENGTH: 0.5MG

REACTIONS (4)
  - Fatigue [Recovering/Resolving]
  - Depressed mood [Recovering/Resolving]
  - Dizziness [Recovering/Resolving]
  - Suicidal ideation [Recovering/Resolving]

NARRATIVE: CASE EVENT DATE: 20210401
